FAERS Safety Report 11781021 (Version 3)
Quarter: 2016Q1

REPORT INFORMATION
  Report Type: Report from Study
  Country: DE (occurrence: DE)
  Receive Date: 20151126
  Receipt Date: 20160217
  Transmission Date: 20160525
  Serious: Yes (Hospitalization, Disabling, Other)
  Sender: FDA-Public Use
  Company Number: DE-ABBVIE-15K-062-1506574-00

PATIENT
  Age: 57 Year
  Sex: Female

DRUGS (8)
  1. HUMIRA [Suspect]
     Active Substance: ADALIMUMAB
     Route: 058
  2. PANTOZOL [Concomitant]
     Active Substance: PANTOPRAZOLE SODIUM
     Indication: PRODUCT USED FOR UNKNOWN INDICATION
     Route: 048
  3. VITAMIN B NOS [Concomitant]
     Active Substance: VITAMIN B
     Indication: PRODUCT USED FOR UNKNOWN INDICATION
  4. HUMIRA [Suspect]
     Active Substance: ADALIMUMAB
     Indication: CROHN^S DISEASE
     Route: 058
     Dates: start: 201311, end: 20151117
  5. CORTISONE [Concomitant]
     Active Substance: CORTISONE\HYDROCORTISONE
     Indication: PRODUCT USED FOR UNKNOWN INDICATION
     Route: 048
  6. NEURONTIN [Concomitant]
     Active Substance: GABAPENTIN
     Indication: PRODUCT USED FOR UNKNOWN INDICATION
     Route: 048
  7. XARELTO [Concomitant]
     Active Substance: RIVAROXABAN
     Indication: PRODUCT USED FOR UNKNOWN INDICATION
  8. OXYCODON [Concomitant]
     Active Substance: OXYCODONE
     Indication: PRODUCT USED FOR UNKNOWN INDICATION

REACTIONS (29)
  - Peripheral artery occlusion [Recovering/Resolving]
  - Peripheral artery occlusion [Unknown]
  - White blood cell count increased [Unknown]
  - Blood creatine phosphokinase increased [Unknown]
  - Reperfusion injury [Unknown]
  - Arteriosclerosis [Unknown]
  - Renal cyst [Unknown]
  - Stenosis [Not Recovered/Not Resolved]
  - Intervertebral disc degeneration [Unknown]
  - Haemoglobin decreased [Unknown]
  - Uterine enlargement [Unknown]
  - Blood glucose increased [Unknown]
  - Protein total decreased [Unknown]
  - Peripheral embolism [Recovering/Resolving]
  - Red blood cell count decreased [Unknown]
  - Haematocrit decreased [Unknown]
  - General physical condition abnormal [Not Recovered/Not Resolved]
  - Thrombosis [Unknown]
  - Ovarian enlargement [Unknown]
  - Platelet count increased [Unknown]
  - C-reactive protein increased [Unknown]
  - Hepatic cyst [Unknown]
  - Abdominal lymphadenopathy [Unknown]
  - Peripheral ischaemia [Unknown]
  - Peripheral artery occlusion [Unknown]
  - Peripheral arterial occlusive disease [Unknown]
  - Uterine disorder [Unknown]
  - Spinal deformity [Unknown]
  - Osteosclerosis [Unknown]

NARRATIVE: CASE EVENT DATE: 201511
